FAERS Safety Report 9173562 (Version 1)
Quarter: 2013Q1

REPORT INFORMATION
  Report Type: Spontaneous
  Country: IT (occurrence: None)
  Receive Date: 20130207
  Receipt Date: 20130207
  Transmission Date: 20140127
  Serious: Yes (Other)
  Sender: FDA-Public Use
  Company Number: AEITA201300037

PATIENT
  Age: 74 Year
  Sex: Male

DRUGS (1)
  1. FLEBOGAMMA [Suspect]
     Indication: PRODUCT USED FOR UNKNOWN INDICATION
     Dates: start: 20121211, end: 20121211

REACTIONS (2)
  - Hypertensive crisis [None]
  - Tremor [None]
